FAERS Safety Report 8621630-7 (Version None)
Quarter: 2012Q3

REPORT INFORMATION
  Report Type: 
  Country: None (occurrence: None)
  Receive Date: 20120820
  Receipt Date: 20120820
  Transmission Date: 20120928
  Serious: Yes (Other)
  Sender: FDA-Public Use
  Company Number: None

PATIENT
  Age: 65 Year
  Sex: Female
  Weight: 77.1115 kg

DRUGS (1)
  1. DEXILANT [Suspect]
     Indication: BARRETT'S OESOPHAGUS
     Dosage: 60MG DAILY PO
     Route: 048
     Dates: start: 20120731, end: 20120806

REACTIONS (1)
  - UNEVALUABLE EVENT [None]
